FAERS Safety Report 9049062 (Version 4)
Quarter: 2013Q2

REPORT INFORMATION
  Report Type: Spontaneous
  Country: US (occurrence: US)
  Receive Date: 20130204
  Receipt Date: 20130402
  Transmission Date: 20140414
  Serious: No
  Sender: FDA-Public Use
  Company Number: US-009507513-1301USA012277

PATIENT
  Sex: Female

DRUGS (2)
  1. IMPLANON [Suspect]
     Indication: CONTRACEPTION
     Dosage: 68 MG / 3 YEAR IMPLANT
     Dates: start: 201205
  2. IMPLANON [Suspect]
     Dosage: UNK
     Dates: start: 2010

REACTIONS (5)
  - Incision site pain [Unknown]
  - Weight increased [Unknown]
  - Menstruation irregular [Unknown]
  - Medical device complication [Unknown]
  - Device difficult to use [Unknown]
